FAERS Safety Report 14237768 (Version 1)
Quarter: 2017Q4

REPORT INFORMATION
  Report Type: Spontaneous
  Country: None (occurrence: FR)
  Receive Date: 20171130
  Receipt Date: 20171130
  Transmission Date: 20180321
  Serious: Yes (Other)
  Sender: FDA-Public Use
  Company Number: FR-MERCK KGAA-2036339

PATIENT
  Age: 68 Year
  Sex: Female

DRUGS (4)
  1. SELECTOL [Concomitant]
     Active Substance: CELIPROLOL
  2. CALCIDOSE [Concomitant]
     Active Substance: CALCIUM CARBONATE
  3. NOVOTHYROX [Suspect]
     Active Substance: LEVOTHYROXINE SODIUM
     Indication: AUTOIMMUNE THYROIDITIS
     Dates: start: 201704
  4. COKENZEN(BLOPRESS PLUS) [Concomitant]

REACTIONS (17)
  - Blood thyroid stimulating hormone decreased [None]
  - Headache [None]
  - Muscular weakness [None]
  - Dizziness [Recovering/Resolving]
  - Pain [None]
  - Peripheral swelling [None]
  - Diarrhoea [None]
  - Auditory disorder [None]
  - Visual impairment [None]
  - Fall [None]
  - Tinnitus [None]
  - Fatigue [None]
  - Alopecia [None]
  - Impaired driving ability [None]
  - Insomnia [None]
  - Syncope [None]
  - Abdominal pain [None]

NARRATIVE: CASE EVENT DATE: 2017
